FAERS Safety Report 9868656 (Version 2)
Quarter: 2014Q3

REPORT INFORMATION
  Report Type: Spontaneous
  Country: US (occurrence: US)
  Receive Date: 20140204
  Receipt Date: 20140820
  Transmission Date: 20150326
  Serious: Yes (Hospitalization, Other)
  Sender: FDA-Public Use
  Company Number: US-009507513-1402USA001286

PATIENT
  Sex: Female

DRUGS (1)
  1. NUVARING [Suspect]
     Active Substance: ETHINYL ESTRADIOL\ETONOGESTREL
     Indication: PRODUCT USED FOR UNKNOWN INDICATION
     Route: 067

REACTIONS (6)
  - Thyroid neoplasm [Unknown]
  - Pituitary tumour [Unknown]
  - Hypoxia [Unknown]
  - Pulmonary embolism [Unknown]
  - Obesity [Unknown]
  - Nausea [Unknown]

NARRATIVE: CASE EVENT DATE: 20091028
